FAERS Safety Report 9548289 (Version 1)
Quarter: 2013Q2

REPORT INFORMATION
  Report Type: Spontaneous
  Country: US (occurrence: None)
  Receive Date: 20130627
  Receipt Date: 20130627
  Transmission Date: 20140414
  Serious: Yes (Other)
  Sender: FDA-Public Use
  Company Number: 1000044840

PATIENT
  Age: 65 Year
  Sex: Female

DRUGS (4)
  1. LINZESS [Suspect]
     Indication: CONSTIPATION
     Dosage: 145MCG (145 MCG, 1 IN1 D), ORAL
     Route: 048
     Dates: start: 20130426
  2. LINZESS [Suspect]
     Indication: IRRITABLE BOWEL SYNDROME
     Dosage: 145MCG (145 MCG, 1 IN1 D), ORAL
     Route: 048
     Dates: start: 20130426
  3. METOPROLOL (METOPROLOL) (25 MILLIGRAM) (METOPROLOL) [Concomitant]
  4. ALLEGRA (FEXOFENADINE HYDROCHLORIDE) (FEXOFENADINE HYDROCHLORIDE) [Concomitant]

REACTIONS (2)
  - Diarrhoea [None]
  - Drug effect increased [None]
